FAERS Safety Report 24179019 (Version 1)
Quarter: 2024Q3

REPORT INFORMATION
  Report Type: Spontaneous
  Country: GB (occurrence: GB)
  Receive Date: 20240806
  Receipt Date: 20240806
  Transmission Date: 20241017
  Serious: Yes (Other)
  Sender: MYLAN
  Company Number: None

PATIENT
  Age: 75 Year
  Sex: Male

DRUGS (5)
  1. LINEZOLID [Suspect]
     Active Substance: LINEZOLID
     Indication: Graft infection
     Dosage: 600 MILLIGRAM, BID (28 DAYS OF TWICE DAILY 600MG TABLETS)
     Route: 065
     Dates: start: 20240627, end: 20240724
  2. CIPROFLOXACIN [Concomitant]
     Active Substance: CIPROFLOXACIN
     Dosage: UNK UNK, BID, (TWICE DAILY)
     Route: 065
  3. TEICOPLANIN [Concomitant]
     Active Substance: TEICOPLANIN
     Dosage: UNK UNK, QD, (1X DAILY)
     Route: 065
  4. VANCOMYCIN [Concomitant]
     Active Substance: VANCOMYCIN
     Dosage: UNK UNK, BID, (TWICE DAILY)
     Route: 065
  5. TAMSULOSIN [Concomitant]
     Active Substance: TAMSULOSIN
     Dosage: UNK
     Route: 065

REACTIONS (5)
  - Aphasia [Unknown]
  - Brain fog [Unknown]
  - Anaemia [Unknown]
  - Malaise [Unknown]
  - Fatigue [Unknown]
